FAERS Safety Report 9786041 (Version 1)
Quarter: 2013Q4

REPORT INFORMATION
  Report Type: Spontaneous
  Country: CA (occurrence: None)
  Receive Date: 20131223
  Receipt Date: 20131223
  Transmission Date: 20140711
  Serious: Yes (Other)
  Sender: FDA-Public Use
  Company Number: CA-014068

PATIENT
  Age: 88 Year
  Sex: Male

DRUGS (7)
  1. FIRMAGON [Suspect]
     Indication: PROSTATE CANCER
     Route: 058
     Dates: start: 20130412
  2. ELAVIL /00003301/ [Concomitant]
  3. PANTOLOC /01263204/ [Concomitant]
  4. LISINOPRIL [Concomitant]
  5. TIAZAC XC [Concomitant]
  6. ATORVASTATIN [Concomitant]
  7. TYLENOL EXTRA STRENGTH [Concomitant]

REACTIONS (3)
  - Renal failure [None]
  - Urinary tract infection [None]
  - Malaise [None]
